FAERS Safety Report 21839246 (Version 1)
Quarter: 2023Q1

REPORT INFORMATION
  Report Type: Spontaneous
  Country: US (occurrence: None)
  Receive Date: 20230107
  Receipt Date: 20230107
  Transmission Date: 20230418
  Serious: Yes (unspecified)
  Sender: FDA-Public Use
  Company Number: None

PATIENT
  Age: 84 Year
  Sex: Male
  Weight: 77 kg

DRUGS (4)
  1. LORAZEPAM [Suspect]
     Active Substance: LORAZEPAM
     Indication: Pain
     Dosage: OTHER STRENGTH : 2MG/ML, 0.5ML;?
     Dates: start: 20220507, end: 20220507
  2. LORAZEPAM [Suspect]
     Active Substance: LORAZEPAM
     Indication: Regurgitation
  3. DILTIAZEM [Suspect]
     Active Substance: DILTIAZEM
  4. TAMSULOSIN [Suspect]
     Active Substance: TAMSULOSIN

REACTIONS (1)
  - Hypotension [None]

NARRATIVE: CASE EVENT DATE: 20210507
